FAERS Safety Report 5409882-8 (Version None)
Quarter: 2007Q3

REPORT INFORMATION
  Report Type: 
  Country: None (occurrence: None)
  Receive Date: 20070809
  Receipt Date: 20070730
  Transmission Date: 20080115
  Serious: Yes (Other)
  Sender: FDA-Public Use
  Company Number: JP-PFIZER INC-2007062115

PATIENT
  Sex: Male

DRUGS (2)
  1. FLUCAM [Suspect]
     Indication: TOOTHACHE
     Route: 048
     Dates: start: 20070720, end: 20070720
  2. ANTIHYPERTENSIVES [Concomitant]
     Route: 048

REACTIONS (2)
  - OEDEMA GENITAL [None]
  - OEDEMA PERIPHERAL [None]
